FAERS Safety Report 12951645 (Version 6)
Quarter: 2024Q2

REPORT INFORMATION
  Report Type: Report from Study
  Country: FR (occurrence: FR)
  Receive Date: 20161117
  Receipt Date: 20240501
  Transmission Date: 20240716
  Serious: Yes (Hospitalization, Disabling, Other)
  Sender: FDA-Public Use
  Company Number: FR-ABBVIE-16P-056-1778723-00

PATIENT
  Age: 20 Year
  Sex: Male

DRUGS (4)
  1. HUMIRA [Suspect]
     Active Substance: ADALIMUMAB
     Indication: Colitis ulcerative
     Dosage: TIME INTERVAL: TOTAL: AT INDUCTION
     Route: 058
     Dates: start: 20161004, end: 20161004
  2. HUMIRA [Suspect]
     Active Substance: ADALIMUMAB
     Dosage: 14D AFTER THE 1ST INJECTION
     Route: 058
     Dates: start: 20161017, end: 20161028
  3. HUMIRA [Suspect]
     Active Substance: ADALIMUMAB
     Route: 058
  4. REMICADE [Concomitant]
     Active Substance: INFLIXIMAB
     Indication: Product used for unknown indication
     Route: 042
     Dates: start: 20180820

REACTIONS (1)
  - Arrhythmia supraventricular [Recovering/Resolving]

NARRATIVE: CASE EVENT DATE: 20161022
